FAERS Safety Report 22848335 (Version 2)
Quarter: 2025Q1

REPORT INFORMATION
  Report Type: Spontaneous
  Country: SE (occurrence: SE)
  Receive Date: 20230822
  Receipt Date: 20250129
  Transmission Date: 20250409
  Serious: Yes (Hospitalization, Other)
  Sender: NOVARTIS
  Company Number: SE-SANDOZ-SDZ2023SE015081

PATIENT
  Age: 75 Year
  Sex: Male

DRUGS (3)
  1. RIVASTIGMINE [Suspect]
     Active Substance: RIVASTIGMINE
     Indication: Dementia
     Dosage: 4.6 MG, QD (1 PATCHES A DAY)
     Route: 065
     Dates: start: 20230209, end: 20230213
  2. EXELON [Suspect]
     Active Substance: RIVASTIGMINE TARTRATE
     Indication: Dementia
     Route: 065
     Dates: start: 20230227, end: 20230423
  3. MOVICOL [Suspect]
     Active Substance: POLYETHYLENE GLYCOL 3350\POTASSIUM CHLORIDE\SODIUM BICARBONATE\SODIUM CHLORIDE
     Indication: Product used for unknown indication
     Route: 065
     Dates: start: 202306

REACTIONS (10)
  - Lower limb fracture [Unknown]
  - Abdominal discomfort [Recovered/Resolved]
  - Fall [Recovered/Resolved]
  - Cerebral haemorrhage [Unknown]
  - Hypokinesia [Unknown]
  - Nightmare [Unknown]
  - Fatigue [Unknown]
  - Fall [Unknown]
  - Wrong technique in product usage process [Unknown]
  - Product dispensing error [Unknown]

NARRATIVE: CASE EVENT DATE: 20230426
